FAERS Safety Report 7176515-2 (Version None)
Quarter: 2010Q4

REPORT INFORMATION
  Report Type: 
  Country: None (occurrence: None)
  Receive Date: 20101220
  Receipt Date: 20101215
  Transmission Date: 20110411
  Serious: Yes (Other)
  Sender: FDA-Public Use
  Company Number: JP-PFIZER INC-2010173105

PATIENT
  Sex: Male

DRUGS (3)
  1. ZOLOFT [Suspect]
     Indication: DEPRESSION
     Dosage: 100 MG, A DAY
     Route: 048
     Dates: start: 20080101, end: 20101127
  2. ZOLOFT [Suspect]
     Dosage: 75 MG, A DAY
     Route: 048
     Dates: start: 20101128
  3. SOLANAX [Suspect]
     Dosage: UNK
     Route: 048

REACTIONS (4)
  - GAIT DISTURBANCE [None]
  - INSOMNIA [None]
  - PARKINSON'S DISEASE [None]
  - SUBDURAL HAEMATOMA [None]
